FAERS Safety Report 5750641-4 (Version None)
Quarter: 2008Q2

REPORT INFORMATION
  Report Type: 
  Country: None (occurrence: None)
  Receive Date: 20080528
  Receipt Date: 20080502
  Transmission Date: 20081010
  Serious: No
  Sender: FDA-Public Use
  Company Number: US-ABBOTT-08P-163-0449960-00

PATIENT
  Age: 50 Year
  Sex: Female

DRUGS (1)
  1. SIMCOR [Suspect]
     Indication: HIGH DENSITY LIPOPROTEIN DECREASED
     Dosage: 500 MG / 20MG
     Route: 048

REACTIONS (2)
  - FLUSHING [None]
  - NAUSEA [None]
